FAERS Safety Report 18807326 (Version 2)
Quarter: 2021Q1

REPORT INFORMATION
  Report Type: Report from Study
  Country: None (occurrence: CA)
  Receive Date: 20210128
  Receipt Date: 20210201
  Transmission Date: 20210419
  Serious: No
  Sender: FDA-Public Use
  Company Number: CA-ABBVIE-21K-028-3748552-00

PATIENT
  Sex: Male

DRUGS (1)
  1. HUMIRA [Suspect]
     Active Substance: ADALIMUMAB
     Indication: CROHN^S DISEASE
     Route: 058
     Dates: start: 20191010

REACTIONS (3)
  - Faecal calprotectin abnormal [Not Recovered/Not Resolved]
  - Small intestinal stenosis [Not Recovered/Not Resolved]
  - Abdominal pain lower [Not Recovered/Not Resolved]
